FAERS Safety Report 7545589-9 (Version None)
Quarter: 2011Q2

REPORT INFORMATION
  Report Type: 
  Country: None (occurrence: None)
  Receive Date: 20110613
  Receipt Date: 20110613
  Transmission Date: 20111010
  Serious: No
  Sender: FDA-Public Use
  Company Number: None

PATIENT
  Age: 36 Year
  Sex: Female

DRUGS (1)
  1. COPAXONE [Suspect]
     Dosage: 20MG DAILY SUBCUTANEOUSLY
     Route: 058
     Dates: start: 20110401, end: 20110430

REACTIONS (4)
  - DIZZINESS [None]
  - INFLUENZA LIKE ILLNESS [None]
  - NAUSEA [None]
  - HYPERTENSION [None]
